FAERS Safety Report 15562196 (Version 13)
Quarter: 2019Q3

REPORT INFORMATION
  Report Type: Report from Study
  Country: US (occurrence: US)
  Receive Date: 20181029
  Receipt Date: 20190925
  Transmission Date: 20191004
  Serious: Yes (Other)
  Sender: FDA-Public Use
  Company Number: US-TESARO-US-2017TSO02208

PATIENT
  Age: 76 Year
  Sex: Female

DRUGS (20)
  1. NIRAPARIB [Suspect]
     Active Substance: NIRAPARIB
     Dosage: 100 MG, QD
     Dates: start: 201711
  2. NIRAPARIB [Suspect]
     Active Substance: NIRAPARIB
     Dosage: 100, MG, EVERY THIRD DAY
     Route: 048
  3. NIRAPARIB [Suspect]
     Active Substance: NIRAPARIB
     Dosage: 300 MG, QD
     Route: 048
     Dates: start: 20190910
  4. CRANBERRY                          /01512301/ [Concomitant]
     Active Substance: CRANBERRY
  5. PROBIOTICS                         /07325001/ [Concomitant]
     Active Substance: BIFIDOBACTERIUM LONGUM\LACTOBACILLUS ACIDOPHILUS\LACTOBACILLUS RHAMNOSUS
  6. VITAMIN E [Concomitant]
     Active Substance: .ALPHA.-TOCOPHEROL
     Dosage: UNK
  7. NIRAPARIB [Suspect]
     Active Substance: NIRAPARIB
     Dosage: 100 MG, QD
     Route: 048
     Dates: start: 20180224
  8. NIRAPARIB [Suspect]
     Active Substance: NIRAPARIB
     Dosage: 100 MG, DAILY AM WITH FOOD
     Route: 048
     Dates: start: 20190618, end: 20190808
  9. NIRAPARIB [Suspect]
     Active Substance: NIRAPARIB
     Dosage: 200 UNK, QD
     Route: 048
     Dates: start: 20190809
  10. NIRAPARIB [Suspect]
     Active Substance: NIRAPARIB
     Dosage: 100 MG, QD
     Route: 048
     Dates: start: 20170720, end: 20170731
  11. NIRAPARIB [Suspect]
     Active Substance: NIRAPARIB
     Dosage: 200 MG, QD
     Route: 048
     Dates: start: 20170901, end: 20171003
  12. TRAMADOL. [Concomitant]
     Active Substance: TRAMADOL
     Dosage: UNK
  13. NIRAPARIB [Suspect]
     Active Substance: NIRAPARIB
     Dosage: 300 MG, QD
     Route: 048
  14. NIRAPARIB [Suspect]
     Active Substance: NIRAPARIB
     Dosage: 100 MG, QD
     Route: 048
     Dates: start: 20171023
  15. NIRAPARIB [Suspect]
     Active Substance: NIRAPARIB
     Dosage: 100 MG, QD
     Route: 048
  16. GABAPENTIN. [Concomitant]
     Active Substance: GABAPENTIN
     Dosage: UNK
  17. LORAZEPAM. [Concomitant]
     Active Substance: LORAZEPAM
     Dosage: UNK
  18. NIRAPARIB [Suspect]
     Active Substance: NIRAPARIB
     Dosage: 200 MG, QD
     Route: 048
     Dates: start: 20170801
  19. NIRAPARIB [Suspect]
     Active Substance: NIRAPARIB
     Dosage: 100 MG, QD
     Route: 048
     Dates: start: 20180314
  20. NIRAPARIB [Suspect]
     Active Substance: NIRAPARIB
     Dosage: 100 UNK, UNK
     Dates: start: 201710

REACTIONS (45)
  - Neuropathy peripheral [Not Recovered/Not Resolved]
  - Eye irritation [Recovering/Resolving]
  - Dry eye [Recovering/Resolving]
  - Hair texture abnormal [Not Recovered/Not Resolved]
  - Rhinorrhoea [Not Recovered/Not Resolved]
  - Decreased appetite [Unknown]
  - Abdominal pain [Unknown]
  - Inappropriate schedule of product administration [Unknown]
  - Feeling abnormal [Recovered/Resolved]
  - Lymphadenopathy [Recovering/Resolving]
  - Anxiety [Recovered/Resolved]
  - Constipation [Recovered/Resolved]
  - Hypoaesthesia [Recovering/Resolving]
  - Performance status decreased [Unknown]
  - Pain in jaw [Recovered/Resolved]
  - Neck pain [Recovered/Resolved]
  - Pneumonitis [Recovered/Resolved]
  - Nausea [Not Recovered/Not Resolved]
  - Vomiting [Recovered/Resolved]
  - Nasopharyngitis [Unknown]
  - Dry mouth [Recovering/Resolving]
  - Weight decreased [Unknown]
  - Muscle spasms [Recovered/Resolved]
  - Memory impairment [Not Recovered/Not Resolved]
  - Influenza [Recovering/Resolving]
  - Paraesthesia [Recovering/Resolving]
  - Muscle twitching [Not Recovered/Not Resolved]
  - Fall [Unknown]
  - Carbohydrate antigen 125 increased [Not Recovered/Not Resolved]
  - Hypersensitivity [Not Recovered/Not Resolved]
  - Alopecia [Not Recovered/Not Resolved]
  - Urinary tract infection [Not Recovered/Not Resolved]
  - Dry skin [Recovering/Resolving]
  - Hot flush [Not Recovered/Not Resolved]
  - Insomnia [Recovered/Resolved]
  - Fatigue [Recovered/Resolved]
  - Abdominal pain lower [Unknown]
  - Joint injury [Unknown]
  - Product dose omission [Unknown]
  - Facial bones fracture [Unknown]
  - Night sweats [Recovering/Resolving]
  - Emotional distress [Recovering/Resolving]
  - Pain [Not Recovered/Not Resolved]
  - Dyspepsia [Recovered/Resolved]
  - Epistaxis [Unknown]

NARRATIVE: CASE EVENT DATE: 2017
